FAERS Safety Report 12957850 (Version 1)
Quarter: 2016Q4

REPORT INFORMATION
  Report Type: Not Available
  Country: US (occurrence: US)
  Receive Date: 20161118
  Receipt Date: 20161118
  Transmission Date: 20170207
  Serious: Yes (Other)
  Sender: FDA-Public Use
  Company Number: US-EOSPRODUCTS-2016-US-008650

PATIENT
  Age: 18 Year
  Sex: Female
  Weight: 113.4 kg

DRUGS (1)
  1. SPF 30 FRESH GRAPEFRUIT SUNSCREEN LIP BALM [Suspect]
     Active Substance: AVOBENZONE\HOMOSALATE\OCTOCRYLENE
     Dosage: APPLIED TO LIPS TWICE
     Route: 061
     Dates: start: 20161017, end: 20161018

REACTIONS (3)
  - Application site swelling [Recovered/Resolved]
  - Dyspnoea [Unknown]
  - Application site rash [Recovered/Resolved]

NARRATIVE: CASE EVENT DATE: 20161018
